FAERS Safety Report 13262172 (Version 2)
Quarter: 2017Q1

REPORT INFORMATION
  Report Type: Report from Study
  Country: None (occurrence: HU)
  Receive Date: 20170222
  Receipt Date: 20170303
  Transmission Date: 20170428
  Serious: Yes (Hospitalization)
  Sender: FDA-Public Use
  Company Number: HU-ABBVIE-17P-076-1882620-00

PATIENT
  Age: 70 Year
  Sex: Male

DRUGS (4)
  1. MIRZATEN [Concomitant]
     Active Substance: MIRTAZAPINE
     Indication: DEPRESSION
     Dosage: 1 TABLET IN THE EVENING
     Route: 048
  2. FRONTIN [Concomitant]
     Active Substance: ALPRAZOLAM
     Indication: SEDATIVE THERAPY
     Dosage: 1 TABLET AT NOON,1TABLET IN THE EVENING
     Route: 048
  3. VERBUTIN [Concomitant]
     Indication: DEPRESSION
     Dosage: 1 TABLET IN THE MORNING
     Route: 048
  4. DUODOPA [Suspect]
     Active Substance: CARBIDOPA\LEVODOPA
     Indication: PARKINSON^S DISEASE
     Dosage: MORNING DOSE 9ML; CONTINUOUS DOSE 4.5ML/H;EXTRA DOSE 2.0ML
     Route: 050

REACTIONS (10)
  - Mobility decreased [Recovering/Resolving]
  - Speech disorder [Not Recovered/Not Resolved]
  - Myalgia [Recovered/Resolved]
  - Muscle rigidity [Recovered/Resolved]
  - Drug ineffective [Unknown]
  - Abasia [Not Recovered/Not Resolved]
  - Device dislocation [Unknown]
  - Dementia [Unknown]
  - General physical health deterioration [Not Recovered/Not Resolved]
  - Muscle spasms [Not Recovered/Not Resolved]

NARRATIVE: CASE EVENT DATE: 201701
